FAERS Safety Report 8825457 (Version 1)
Quarter: 2012Q4

REPORT INFORMATION
  Report Type: 
  Country: US (occurrence: US)
  Receive Date: 20121004
  Receipt Date: 20121004
  Transmission Date: 20130627
  Serious: Yes (Death)
  Sender: FDA-Public Use
  Company Number: US-ROCHE-1130731

PATIENT
  Sex: Female

DRUGS (10)
  1. RITUXAN [Suspect]
     Indication: DIFFUSE LARGE B-CELL LYMPHOMA
     Route: 065
     Dates: start: 20000329
  2. RITUXAN [Suspect]
     Route: 042
     Dates: start: 20000420
  3. CYTOXAN [Concomitant]
  4. MITOZANTRONE [Concomitant]
     Route: 042
  5. DECADRON [Concomitant]
  6. ZOFRAN [Concomitant]
  7. ATIVAN [Concomitant]
  8. TYLENOL [Concomitant]
  9. VINCRISTINE [Concomitant]
     Route: 065
  10. BLEOMYCIN [Concomitant]

REACTIONS (11)
  - Death [Fatal]
  - Fatigue [Unknown]
  - Increased upper airway secretion [Unknown]
  - Nausea [Unknown]
  - Retching [Unknown]
  - Dizziness [Unknown]
  - Breath sounds abnormal [Unknown]
  - Decreased appetite [Unknown]
  - Anaemia [Unknown]
  - Leukopenia [Unknown]
  - Dyspnoea [Unknown]
